FAERS Safety Report 8151991-7 (Version None)
Quarter: 2012Q1

REPORT INFORMATION
  Report Type: 
  Country: None (occurrence: None)
  Receive Date: 20120221
  Receipt Date: 20120214
  Transmission Date: 20120608
  Serious: No
  Sender: FDA-Public Use
  Company Number: US-PFIZER INC-2012039996

PATIENT
  Sex: Female

DRUGS (2)
  1. CHANTIX [Suspect]
     Dosage: UNK
  2. CHANTIX [Suspect]
     Dosage: 1MG, UNK

REACTIONS (5)
  - NAUSEA [None]
  - ABDOMINAL DISCOMFORT [None]
  - INSOMNIA [None]
  - SALIVARY HYPERSECRETION [None]
  - VOMITING [None]
